FAERS Safety Report 8464884-2 (Version None)
Quarter: 2012Q2

REPORT INFORMATION
  Report Type: 
  Country: None (occurrence: None)
  Receive Date: 20120626
  Receipt Date: 20120619
  Transmission Date: 20120825
  Serious: Yes (Other)
  Sender: FDA-Public Use
  Company Number: CH-ELI_LILLY_AND_COMPANY-CH201206006054

PATIENT
  Sex: Male

DRUGS (1)
  1. CIALIS [Suspect]
     Dosage: 2.5 MG, QD
     Dates: start: 20120101

REACTIONS (2)
  - INTRAOCULAR PRESSURE INCREASED [None]
  - BLINDNESS [None]
